FAERS Safety Report 9914407 (Version 2)
Quarter: 2014Q1

REPORT INFORMATION
  Report Type: Spontaneous
  Country: US (occurrence: US)
  Receive Date: 20140220
  Receipt Date: 20140220
  Transmission Date: 20141002
  Serious: No
  Sender: FDA-Public Use
  Company Number: US-GILEAD-2011-0043242

PATIENT
  Age: 55 Year
  Sex: Male
  Weight: 85.26 kg

DRUGS (9)
  1. ATRIPLA [Suspect]
     Indication: HIV INFECTION
     Dosage: 1 DF, QD
     Route: 048
     Dates: start: 20110808
  2. PRILOSEC                           /00661201/ [Concomitant]
     Indication: GASTROOESOPHAGEAL REFLUX DISEASE
  3. NEURONTIN [Concomitant]
     Indication: POST HERPETIC NEURALGIA
  4. ZYPREXA [Concomitant]
     Indication: SCHIZOPHRENIA
  5. AMBIEN [Concomitant]
     Indication: INSOMNIA
  6. TRAZODONE [Concomitant]
     Indication: INSOMNIA
  7. LITHIUM CARBONATE [Concomitant]
     Indication: SCHIZOPHRENIA
  8. KCL [Concomitant]
     Indication: HYPOKALAEMIA
  9. PRAVACHOL [Concomitant]
     Indication: HYPERLIPIDAEMIA

REACTIONS (1)
  - Tinnitus [Not Recovered/Not Resolved]
